FAERS Safety Report 24090924 (Version 1)
Quarter: 2024Q3

REPORT INFORMATION
  Report Type: Report from Study
  Country: ES (occurrence: ES)
  Receive Date: 20240715
  Receipt Date: 20240715
  Transmission Date: 20241016
  Serious: Yes (Other)
  Sender: MYLAN
  Company Number: ES-ELI_LILLY_AND_COMPANY-ES202309004397

PATIENT
  Age: 56 Year
  Sex: Female

DRUGS (7)
  1. LETROZOLE [Suspect]
     Active Substance: LETROZOLE
     Indication: Breast cancer
     Dosage: UNK UNK, UNKNOWN
     Route: 065
  2. LOPERAMIDE HYDROCHLORIDE [Suspect]
     Active Substance: LOPERAMIDE HYDROCHLORIDE
     Indication: Diarrhoea
     Dosage: UNK UNK, UNKNOWN
     Route: 065
  3. ABEMACICLIB [Suspect]
     Active Substance: ABEMACICLIB
     Indication: Breast cancer
     Dosage: 150 MILLIGRAM
     Route: 048
     Dates: start: 202304
  4. ABEMACICLIB [Suspect]
     Active Substance: ABEMACICLIB
     Dosage: 100 MILLIGRAM
     Route: 048
     Dates: start: 20231220
  5. ABEMACICLIB [Suspect]
     Active Substance: ABEMACICLIB
     Dosage: 150 MILLIGRAM
     Route: 048
     Dates: start: 202402
  6. METHYLPREDNISOLONE [Suspect]
     Active Substance: METHYLPREDNISOLONE
     Indication: Arthropod sting
     Dosage: UNK UNK, UNKNOWN
     Route: 065
  7. Lactoflora [Concomitant]
     Indication: Prophylaxis
     Dosage: UNK, UNKNOWN
     Route: 065

REACTIONS (20)
  - Cataract [Recovered/Resolved]
  - Oral disorder [Recovering/Resolving]
  - Blood cholesterol increased [Recovering/Resolving]
  - Diarrhoea [Recovering/Resolving]
  - Amnesia [Recovering/Resolving]
  - Palatal disorder [Recovering/Resolving]
  - Arthropod sting [Recovering/Resolving]
  - Eye ulcer [Recovering/Resolving]
  - Visual impairment [Recovering/Resolving]
  - Constipation [Recovering/Resolving]
  - Weight gain poor [Recovering/Resolving]
  - Weight increased [Recovering/Resolving]
  - Blood test abnormal [Recovering/Resolving]
  - Alopecia [Recovering/Resolving]
  - Arthralgia [Recovering/Resolving]
  - Defaecation disorder [Recovering/Resolving]
  - Bone pain [Recovering/Resolving]
  - Weight decreased [Unknown]
  - Hair growth abnormal [Recovering/Resolving]
  - Sleep disorder [Recovering/Resolving]
